FAERS Safety Report 5316380-9 (Version None)
Quarter: 2007Q2

REPORT INFORMATION
  Report Type: 
  Country: None (occurrence: None)
  Receive Date: 20070430
  Receipt Date: 20070419
  Transmission Date: 20071010
  Serious: Yes (Hospitalization, Other)
  Sender: FDA-Public Use
  Company Number: TPA2007A00832

PATIENT
  Age: 73 Year
  Sex: Female
  Weight: 85.7298 kg

DRUGS (12)
  1. ACTOS [Suspect]
     Indication: DIABETES MELLITUS NON-INSULIN-DEPENDENT
     Dosage: 30 MG, 1 IN 1 D, PER ORAL
     Route: 048
     Dates: start: 20060101
  2. METFORMIN HCL [Concomitant]
  3. DIOVAN [Concomitant]
  4. KLORCON (POTASSSIUM CHLORIDE) [Concomitant]
  5. VERAPAMIL (VERAPAMIL) (240 MILLLIGRAM, TABLETS) [Concomitant]
  6. ZOCOR [Concomitant]
  7. ATENOLOL [Concomitant]
  8. LASIX [Concomitant]
  9. GLYBURIDE (GLIBENCLAMIDE) (3 MILLIGRAM, TABLETS) [Concomitant]
  10. FOLIC ACID [Concomitant]
  11. ASPIRIN [Concomitant]
  12. CHROMIUM (CHROMIUM) [Concomitant]

REACTIONS (4)
  - CORONARY ARTERY OCCLUSION [None]
  - MUSCULAR WEAKNESS [None]
  - PHARYNGOLARYNGEAL PAIN [None]
  - SPINAL FRACTURE [None]
